FAERS Safety Report 14702694 (Version 1)
Quarter: 2018Q2

REPORT INFORMATION
  Report Type: Spontaneous
  Country: DE (occurrence: DE)
  Receive Date: 20180402
  Receipt Date: 20180402
  Transmission Date: 20180711
  Serious: Yes (Hospitalization, Other)
  Sender: FDA-Public Use
  Company Number: DE-TEVA-2018-DE-876508

PATIENT
  Age: 69 Year
  Sex: Male

DRUGS (19)
  1. SALBUTAMOL [Suspect]
     Active Substance: ALBUTEROL
     Dosage: IF NECESSARY
     Route: 055
  2. SUFENTA [Concomitant]
     Active Substance: SUFENTANIL CITRATE
     Route: 065
  3. ZEVTERA [Concomitant]
     Dosage: 500 MG 1-1-1 FOR 2 H
     Route: 065
  4. KALIUMCHLORID [Concomitant]
     Route: 065
  5. PROPOFOL 20 MG/ML [Suspect]
     Active Substance: PROPOFOL
     Dosage: AT NIGHT: 1-2 ML / H
     Route: 042
  6. LINEZOLID. [Concomitant]
     Active Substance: LINEZOLID
     Route: 065
  7. GABAPENTIN. [Concomitant]
     Active Substance: GABAPENTIN
     Route: 065
  8. MOVICOL [Concomitant]
     Active Substance: POLYETHYLENE GLYCOL 3350\POTASSIUM CHLORIDE\SODIUM BICARBONATE\SODIUM CHLORIDE
     Route: 065
  9. DULOXETIN [Concomitant]
     Active Substance: DULOXETINE
     Route: 065
  10. TIZANIDIN [Concomitant]
     Route: 065
  11. VFEND [Concomitant]
     Active Substance: VORICONAZOLE
     Route: 065
  12. AMPHO-MORONAL [Suspect]
     Active Substance: AMPHOTERICIN B
     Dosage: 4 DOSAGE FORMS DAILY;
     Route: 065
  13. LAXANS [Concomitant]
     Route: 065
  14. PROPIVERIN [Concomitant]
     Route: 065
  15. NEXIUM [Concomitant]
     Active Substance: ESOMEPRAZOLE MAGNESIUM
     Route: 065
  16. LASIX [Suspect]
     Active Substance: FUROSEMIDE
     Dosage: 20 MILLIGRAM DAILY;
     Route: 042
  17. FRAXIPARIN [Concomitant]
     Active Substance: NADROPARIN CALCIUM
     Route: 065
  18. ARTERENOL 0.1 MG/ML [Suspect]
     Active Substance: NOREPINEPHRINE HYDROCHLORIDE, (+/-)-
     Dosage: TARGET MAD} 65
     Route: 042
  19. INSULIN [Concomitant]
     Active Substance: INSULIN NOS
     Route: 065

REACTIONS (1)
  - Torsade de pointes [Recovered/Resolved]
